FAERS Safety Report 15504171 (Version 1)
Quarter: 2018Q4

REPORT INFORMATION
  Report Type: Report from Study
  Country: US (occurrence: US)
  Receive Date: 20181016
  Receipt Date: 20181016
  Transmission Date: 20190205
  Serious: No
  Sender: FDA-Public Use
  Company Number: US-AMGEN INC.-USASL2018130127

PATIENT
  Age: 48 Year
  Sex: Female

DRUGS (2)
  1. RIZATRIPTAN. [Concomitant]
     Active Substance: RIZATRIPTAN
     Dosage: UNK
  2. AIMOVIG [Suspect]
     Active Substance: ERENUMAB-AOOE
     Indication: MIGRAINE WITHOUT AURA
     Dosage: 70 UNK, UNK
     Route: 065
     Dates: start: 20180912

REACTIONS (7)
  - Herpes zoster [Not Recovered/Not Resolved]
  - Drug effect incomplete [Unknown]
  - Chest discomfort [Recovered/Resolved]
  - Dyspepsia [Unknown]
  - Chest pain [Unknown]
  - Pruritus generalised [Recovered/Resolved]
  - Pain in extremity [Unknown]

NARRATIVE: CASE EVENT DATE: 2018
